FAERS Safety Report 13029721 (Version 1)
Quarter: 2016Q4

REPORT INFORMATION
  Report Type: Spontaneous
  Country: CO (occurrence: CO)
  Receive Date: 20161215
  Receipt Date: 20161215
  Transmission Date: 20170207
  Serious: Yes (Death)
  Sender: FDA-Public Use
  Company Number: CO-ROCHE-1866100

PATIENT
  Age: 65 Year
  Sex: Male

DRUGS (5)
  1. ASPIRIN. [Suspect]
     Active Substance: ASPIRIN
     Indication: PRODUCT USED FOR UNKNOWN INDICATION
     Route: 065
  2. METALYSE [Suspect]
     Active Substance: TENECTEPLASE
     Indication: ANGINA PECTORIS
     Route: 065
  3. CLOPIDOGREL [Suspect]
     Active Substance: CLOPIDOGREL BISULFATE
     Indication: PRODUCT USED FOR UNKNOWN INDICATION
     Route: 065
  4. METALYSE [Suspect]
     Active Substance: TENECTEPLASE
     Indication: ELECTROCARDIOGRAM ST SEGMENT ABNORMAL
  5. TIROFIBAN [Suspect]
     Active Substance: TIROFIBAN
     Indication: PRODUCT USED FOR UNKNOWN INDICATION
     Route: 065

REACTIONS (3)
  - Electrocardiogram ST segment elevation [Unknown]
  - Cerebrovascular accident [Fatal]
  - Drug ineffective [Fatal]
